FAERS Safety Report 22066264 (Version 1)
Quarter: 2023Q1

REPORT INFORMATION
  Report Type: Spontaneous
  Country: US (occurrence: US)
  Receive Date: 20230306
  Receipt Date: 20230306
  Transmission Date: 20230418
  Serious: Yes (Other)
  Sender: FDA-Public Use
  Company Number: US-JNJFOC-20230230542

PATIENT
  Sex: Female

DRUGS (1)
  1. SALICYLIC ACID [Suspect]
     Active Substance: SALICYLIC ACID
     Indication: Product used for unknown indication
     Dosage: ONCE DAILY, STARTED SINCE THE AGE OF 14 YEARS AND USING EXACT SAME PRODUCT
     Route: 061
     Dates: start: 20040601

REACTIONS (4)
  - Abortion spontaneous [Unknown]
  - Exposure during pregnancy [Unknown]
  - Gallbladder disorder [Unknown]
  - Adverse event [Unknown]
